FAERS Safety Report 5489136-4 (Version None)
Quarter: 2007Q4

REPORT INFORMATION
  Report Type: 
  Country: None (occurrence: None)
  Receive Date: 20071005
  Receipt Date: 20070621
  Transmission Date: 20080405
  Serious: Yes (Other)
  Sender: FDA-Public Use
  Company Number: PHEH2007US09118

PATIENT
  Age: 46 Year
  Sex: Female

DRUGS (2)
  1. TEKTURNA [Suspect]
     Indication: HYPERTENSION
     Dosage: 150 MG, ONCE/SINGEL, ORAL
     Route: 048
     Dates: start: 20070607, end: 20070607
  2. DIOVAN HCT [Suspect]
     Indication: HYPERTENSION
     Dosage: 320 MG VALSARTAN/ 25 MG HCT

REACTIONS (1)
  - HYPOTENSION [None]
